FAERS Safety Report 4972249-0 (Version None)
Quarter: 2006Q2

REPORT INFORMATION
  Report Type: 
  Country: None (occurrence: None)
  Receive Date: 20060413
  Receipt Date: 20060405
  Transmission Date: 20061013
  Serious: Yes (Hospitalization)
  Sender: FDA-Public Use
  Company Number: FR-BRISTOL-MYERS SQUIBB COMPANY-13340906

PATIENT
  Age: 65 Year
  Sex: Male

DRUGS (10)
  1. GLUCOPHAGE [Suspect]
     Route: 048
  2. TAHOR [Suspect]
  3. FLUDEX [Suspect]
  4. TENORDATE [Suspect]
  5. NEXIUM [Suspect]
  6. AERIUS [Suspect]
  7. IKOREL [Concomitant]
  8. NOVOMIX [Concomitant]
  9. PLAVIX [Concomitant]
  10. JOSIR [Concomitant]

REACTIONS (1)
  - HEPATITIS CHOLESTATIC [None]
